FAERS Safety Report 16270337 (Version 1)
Quarter: 2019Q2

REPORT INFORMATION
  Report Type: Spontaneous
  Country: US (occurrence: US)
  Receive Date: 20190329
  Receipt Date: 20190329
  Transmission Date: 20190711
  Serious: No
  Sender: FDA-Public Use
  Company Number: None

PATIENT
  Age: 51 Year
  Sex: Male
  Weight: 70.31 kg

DRUGS (2)
  1. SIMPONI [Suspect]
     Active Substance: GOLIMUMAB
     Indication: ANKYLOSING SPONDYLITIS
  2. SIMPONI [Suspect]
     Active Substance: GOLIMUMAB
     Indication: ARTHROPATHY
     Route: 058
     Dates: start: 201712

REACTIONS (2)
  - Chronic obstructive pulmonary disease [None]
  - General physical condition normal [None]
